FAERS Safety Report 19844865 (Version 2)
Quarter: 2021Q3

REPORT INFORMATION
  Report Type: Spontaneous
  Country: US (occurrence: US)
  Receive Date: 20210917
  Receipt Date: 20210928
  Transmission Date: 20211014
  Serious: Yes (Other)
  Sender: FDA-Public Use
  Company Number: US-AMGEN-USASP2021141696

PATIENT
  Age: 59 Year
  Sex: Female

DRUGS (2)
  1. PREDNISONE. [Concomitant]
     Active Substance: PREDNISONE
     Dosage: 40 MILLIGRAM (4 DAYS)
  2. NEULASTA [Suspect]
     Active Substance: PEGFILGRASTIM
     Indication: PRODUCT USED FOR UNKNOWN INDICATION
     Dosage: UNK
     Route: 065

REACTIONS (6)
  - Application site pain [Not Recovered/Not Resolved]
  - Cyst rupture [Not Recovered/Not Resolved]
  - Wound secretion [Not Recovered/Not Resolved]
  - Incision site impaired healing [Recovering/Resolving]
  - Inflammation [Not Recovered/Not Resolved]
  - Application site nodule [Not Recovered/Not Resolved]

NARRATIVE: CASE EVENT DATE: 202012
